FAERS Safety Report 10792612 (Version 1)
Quarter: 2015Q1

REPORT INFORMATION
  Report Type: Spontaneous
  Country: DE (occurrence: DE)
  Receive Date: 20150213
  Receipt Date: 20150213
  Transmission Date: 20150721
  Serious: Yes (Congenital Anomaly)
  Sender: FDA-Public Use
  Company Number: DE-ROXANE LABORATORIES, INC.-2015-RO-00227RO

PATIENT
  Age: 14 Week

DRUGS (2)
  1. DIFLUCORTOLONE [Suspect]
     Active Substance: DIFLUCORTOLONE
     Indication: FOETAL EXPOSURE DURING PREGNANCY
     Route: 064
  2. METHOTREXATE [Suspect]
     Active Substance: METHOTREXATE
     Indication: FOETAL EXPOSURE DURING PREGNANCY
     Route: 064

REACTIONS (1)
  - Limb reduction defect [Unknown]
